FAERS Safety Report 7322815-2 (Version None)
Quarter: 2011Q1

REPORT INFORMATION
  Report Type: 
  Country: None (occurrence: None)
  Receive Date: 20110217
  Receipt Date: 20110208
  Transmission Date: 20110831
  Serious: Yes (Other)
  Sender: FDA-Public Use
  Company Number: 025337

PATIENT
  Age: 21 Year
  Sex: Female

DRUGS (4)
  1. LAMOTRIGINE [Suspect]
     Indication: EPILEPSY
     Dosage: (100 MG / 125 MG)
  2. CLONAZEPAM [Suspect]
     Indication: EPILEPSY
     Dosage: (25 MG PRN, 1/2 X 0,5 MG (0.25 MG) AS NEEDED, USUALLY TABLET EVERY 3 DAYS)
  3. ACETAZOLAMIDE [Suspect]
     Indication: EPILEPSY
     Dosage: (125 MG QD)
  4. LEVETIRACETAM [Suspect]
     Indication: EPILEPSY
     Dosage: (250 MG BID)

REACTIONS (7)
  - FEAR [None]
  - SPEECH DISORDER [None]
  - NERVOUSNESS [None]
  - FATIGUE [None]
  - MUSCLE TWITCHING [None]
  - SINGLE PHOTON EMISSION COMPUTERISED TOMOGRAM ABNORMAL [None]
  - GRAND MAL CONVULSION [None]
